FAERS Safety Report 8396674-3 (Version None)
Quarter: 2012Q2

REPORT INFORMATION
  Report Type: 
  Country: None (occurrence: None)
  Receive Date: 20120530
  Receipt Date: 20110407
  Transmission Date: 20120825
  Serious: No
  Sender: FDA-Public Use
  Company Number: US-NOVEN-11US002215

PATIENT
  Age: 5 Year
  Sex: Male

DRUGS (2)
  1. DAYTRANA [Suspect]
     Dosage: 10 MG, UNKNOWN
     Route: 062
  2. DAYTRANA [Suspect]
     Indication: ATTENTION DEFICIT/HYPERACTIVITY DISORDER
     Dosage: 15 MG, UNKNOWN
     Route: 062

REACTIONS (2)
  - NO ADVERSE EVENT [None]
  - OFF LABEL USE [None]
